FAERS Safety Report 5023557-9 (Version None)
Quarter: 2006Q2

REPORT INFORMATION
  Report Type: 
  Country: None (occurrence: None)
  Receive Date: 20060612
  Receipt Date: 20060602
  Transmission Date: 20061013
  Serious: Yes (Hospitalization)
  Sender: FDA-Public Use
  Company Number: PHHO2006NL09141

PATIENT
  Sex: Female
  Weight: 71 kg

DRUGS (1)
  1. TEGASEROD [Suspect]
     Indication: IRRITABLE BOWEL SYNDROME

REACTIONS (2)
  - NEPHROLITHIASIS [None]
  - RENAL STONE REMOVAL [None]
